FAERS Safety Report 12599564 (Version 2)
Quarter: 2016Q3

REPORT INFORMATION
  Report Type: Report from Study
  Country: MX (occurrence: MX)
  Receive Date: 20160727
  Receipt Date: 20160801
  Transmission Date: 20161109
  Serious: Yes (Other)
  Sender: FDA-Public Use
  Company Number: PHHY2016MX101467

PATIENT
  Sex: Female
  Weight: 72 kg

DRUGS (5)
  1. TAFIROL [Concomitant]
     Indication: ARTHRALGIA
     Dosage: ONE YEAR AND A HALF AGO, EVERY TIME IT HURT (AS REPORTED)
     Route: 048
  2. ACLASTA [Suspect]
     Active Substance: ZOLEDRONIC ACID
     Dosage: 1 DF, Q12MO (ANNUAL)
     Route: 065
     Dates: start: 201606, end: 201606
  3. ASPIRIN PROTECT [Concomitant]
     Active Substance: ASPIRIN
     Indication: PRODUCT USED FOR UNKNOWN INDICATION
     Dosage: ONE YEAR AND A HALF AGO, DAILY
     Route: 048
  4. ACLASTA [Suspect]
     Active Substance: ZOLEDRONIC ACID
     Indication: OSTEOPOROSIS
     Dosage: 1 DF, Q12MO (ANNUAL)
     Route: 065
     Dates: start: 2013
  5. CALTRATE [Concomitant]
     Active Substance: CALCIUM CARBONATE
     Indication: PRODUCT USED FOR UNKNOWN INDICATION
     Dosage: 1(600),DAILY
     Route: 048
     Dates: start: 2009

REACTIONS (2)
  - Diabetes mellitus [Not Recovered/Not Resolved]
  - Blood pressure increased [Not Recovered/Not Resolved]
